FAERS Safety Report 5376905-4 (Version None)
Quarter: 2007Q2

REPORT INFORMATION
  Report Type: 
  Country: None (occurrence: None)
  Receive Date: 20070628
  Receipt Date: 20070628
  Transmission Date: 20071010
  Serious: Yes (Hospitalization)
  Sender: FDA-Public Use
  Company Number: None

PATIENT
  Age: 30 Year
  Sex: Female
  Weight: 115.2136 kg

DRUGS (2)
  1. FEMCON FE WARNER CHILCOTT [Suspect]
     Indication: OVARIAN CYST
     Dosage: ORALLY 1 A DAY
     Route: 048
     Dates: start: 20070101, end: 20070201
  2. OVCON 35MG [Suspect]
     Dates: start: 20060701, end: 20061201

REACTIONS (2)
  - DEEP VEIN THROMBOSIS [None]
  - PULMONARY EMBOLISM [None]
